APPROVED DRUG PRODUCT: XERMELO
Active Ingredient: TELOTRISTAT ETIPRATE
Strength: EQ 250MG BASE
Dosage Form/Route: TABLET;ORAL
Application: N208794 | Product #001
Applicant: TERSERA THERAPEUTICS LLC
Approved: Feb 28, 2017 | RLD: Yes | RS: Yes | Type: RX

PATENTS:
Patent 7709493 | Expires: Feb 28, 2031
Patent 7968559 | Expires: Dec 11, 2027
Patent 8653094 | Expires: Dec 19, 2028
Patent 8193204 | Expires: Feb 27, 2031
Patent 7553840 | Expires: Dec 11, 2027